FAERS Safety Report 6770447-7 (Version None)
Quarter: 2010Q2

REPORT INFORMATION
  Report Type: 
  Country: None (occurrence: None)
  Receive Date: 20100615
  Receipt Date: 20100607
  Transmission Date: 20101027
  Serious: Yes (Other)
  Sender: FDA-Public Use
  Company Number: SE-PFIZER INC-2010070740

PATIENT
  Age: 42 Year
  Sex: Female

DRUGS (7)
  1. DOSTINEX [Suspect]
     Indication: BLOOD PROLACTIN INCREASED
     Dosage: 2 TABLETS WEEKLY
     Route: 048
     Dates: start: 20040101, end: 20090101
  2. DOSTINEX [Suspect]
     Dosage: 2 TABLETS WEEKLY
     Route: 048
     Dates: start: 20090801
  3. IPREN [Concomitant]
     Dosage: UNK
  4. GONAL-F [Concomitant]
     Indication: IN VITRO FERTILISATION
     Dosage: UNK
     Dates: start: 20090101
  5. ORGALUTRAN [Concomitant]
     Indication: IN VITRO FERTILISATION
     Dosage: UNK
     Dates: start: 20090101
  6. OVITRELLE [Concomitant]
     Indication: IN VITRO FERTILISATION
     Dosage: UNK
     Dates: start: 20090101
  7. PROGESTERON [Concomitant]
     Indication: IN VITRO FERTILISATION
     Dosage: UNK
     Route: 067
     Dates: start: 20090101

REACTIONS (3)
  - CHEST PAIN [None]
  - SWELLING [None]
  - UTERINE CANCER [None]
